FAERS Safety Report 19686709 (Version 4)
Quarter: 2021Q3

REPORT INFORMATION
  Report Type: Report from Study
  Country: None (occurrence: FR)
  Receive Date: 20210811
  Receipt Date: 20210917
  Transmission Date: 20211014
  Serious: Yes (Death, Life-Threatening, Hospitalization, Other)
  Sender: FDA-Public Use
  Company Number: FR-ABBVIE-21P-056-3979093-00

PATIENT
  Age: 56 Year
  Sex: Male
  Weight: 75 kg

DRUGS (22)
  1. LEVOTHYROX [Concomitant]
     Active Substance: LEVOTHYROXINE
     Indication: HYPOTHYROIDISM
     Dosage: 1 TABLET IN THE MORNING ON AN EMPTY STOMACH
     Route: 048
     Dates: start: 202104
  2. IBRUTINIB [Suspect]
     Active Substance: IBRUTINIB
     Dosage: DATE OF LAST ADMINISTRATION BEFORE EVENT? 08 JUL 2021
     Route: 048
     Dates: end: 20210719
  3. MEDROL [Concomitant]
     Active Substance: METHYLPREDNISOLONE
     Dosage: 0.5 CP IN THE MORNING
  4. MINIRINMELT [Concomitant]
     Active Substance: DESMOPRESSIN ACETATE
     Indication: HYPERNATRAEMIA
     Route: 048
     Dates: start: 202104, end: 20210628
  5. PENTACARINAT [Concomitant]
     Active Substance: PENTAMIDINE ISETHIONATE
     Indication: PRODUCT USED FOR UNKNOWN INDICATION
     Dates: start: 202106
  6. VALACICLOVIR [Concomitant]
     Active Substance: VALACYCLOVIR HYDROCHLORIDE
     Indication: PRODUCT USED FOR UNKNOWN INDICATION
     Dosage: MORNING AND EVENING
  7. RITUXIMAB. [Concomitant]
     Active Substance: RITUXIMAB
     Indication: CENTRAL NERVOUS SYSTEM LYMPHOMA
     Route: 065
     Dates: start: 20210618, end: 20210618
  8. MINIRINMELT [Concomitant]
     Active Substance: DESMOPRESSIN ACETATE
  9. PREDNISONE. [Concomitant]
     Active Substance: PREDNISONE
     Indication: CENTRAL NERVOUS SYSTEM LYMPHOMA
     Route: 065
     Dates: start: 20210618, end: 20210705
  10. ALPRAZOLAM. [Concomitant]
     Active Substance: ALPRAZOLAM
     Indication: ANXIETY
     Dosage: 1 COMP IF ANXIETY (MAX 4/DAY)
  11. DIFFU K [Concomitant]
     Active Substance: POTASSIUM CHLORIDE
     Indication: PRODUCT USED FOR UNKNOWN INDICATION
     Dosage: 2 CAPSULES MORNING, NOON AND EVENING
     Route: 048
  12. LOVENOX [LEVOFLOXACIN] [Concomitant]
     Active Substance: LEVOFLOXACIN
     Indication: PRODUCT USED FOR UNKNOWN INDICATION
     Dosage: IN THE MORNING
     Route: 058
  13. ZOPICLONE [Concomitant]
     Active Substance: ZOPICLONE
     Indication: INSOMNIA
     Dosage: AT BEDTIME
     Route: 048
  14. PARACETAMOL [Concomitant]
     Active Substance: ACETAMINOPHEN
     Indication: PAIN
     Dosage: IF PAIN (MAX 4/DAY)
  15. VINCRISTINE [Concomitant]
     Active Substance: VINCRISTINE
     Indication: CENTRAL NERVOUS SYSTEM LYMPHOMA
     Route: 065
     Dates: start: 20210618, end: 20210705
  16. FAMOTIDINE. [Concomitant]
     Active Substance: FAMOTIDINE
     Indication: PRODUCT USED FOR UNKNOWN INDICATION
     Dosage: IN THE EVENING
  17. MINIRIN MELT [Concomitant]
     Active Substance: DESMOPRESSIN ACETATE
     Indication: PRODUCT USED FOR UNKNOWN INDICATION
     Dosage: 0.5 TABLET MORNING, NOON AND AT BEDTIME (22 HOURS)
     Route: 048
  18. IBRUTINIB [Suspect]
     Active Substance: IBRUTINIB
     Indication: CENTRAL NERVOUS SYSTEM LYMPHOMA
     Route: 048
     Dates: start: 20210620, end: 20210629
  19. IBRUTINIB [Suspect]
     Active Substance: IBRUTINIB
     Route: 048
     Dates: start: 20210520, end: 20210715
  20. METHOTREXATE. [Concomitant]
     Active Substance: METHOTREXATE
     Indication: CENTRAL NERVOUS SYSTEM LYMPHOMA
     Route: 042
     Dates: start: 20210618, end: 20210705
  21. PROCARBAZINE [Concomitant]
     Active Substance: PROCARBAZINE
     Indication: CENTRAL NERVOUS SYSTEM LYMPHOMA
     Route: 048
     Dates: start: 20210618, end: 20210624
  22. MEDROL [Concomitant]
     Active Substance: METHYLPREDNISOLONE
     Indication: OEDEMA
     Route: 048
     Dates: start: 20210622

REACTIONS (4)
  - Hypernatraemia [Recovered/Resolved]
  - Hyponatraemia [Recovered/Resolved]
  - Sepsis [Fatal]
  - Central nervous system lymphoma [Not Recovered/Not Resolved]

NARRATIVE: CASE EVENT DATE: 20210628
